FAERS Safety Report 6145921-7 (Version None)
Quarter: 2009Q2

REPORT INFORMATION
  Report Type: 
  Country: None (occurrence: None)
  Receive Date: 20090403
  Receipt Date: 20090326
  Transmission Date: 20091009
  Serious: Yes (Hospitalization)
  Sender: FDA-Public Use
  Company Number: 1000005476

PATIENT
  Sex: Male

DRUGS (4)
  1. ESCITALOPRAM [Suspect]
     Dosage: ORAL
     Route: 048
     Dates: start: 20080401
  2. KALETRA [Suspect]
     Indication: HIV INFECTION
     Dosage: ORAL
     Route: 048
     Dates: start: 20001001, end: 20080501
  3. LAMIVUDINE [Suspect]
     Dates: start: 20001001, end: 20080501
  4. DIDANOSINE [Suspect]
     Dates: start: 20001001, end: 20080501

REACTIONS (5)
  - ACUTE ABDOMEN [None]
  - CONDITION AGGRAVATED [None]
  - DRUG INTERACTION [None]
  - LIPOATROPHY [None]
  - LIPODYSTROPHY ACQUIRED [None]
